FAERS Safety Report 7164283-X (Version None)
Quarter: 2010Q4

REPORT INFORMATION
  Report Type: 
  Country: None (occurrence: None)
  Receive Date: 20101215
  Receipt Date: 20101207
  Transmission Date: 20110411
  Serious: Yes (Hospitalization, Other)
  Sender: FDA-Public Use
  Company Number: BR-ABBOTT-09P-020-0598814-00

PATIENT
  Sex: Female
  Weight: 102 kg

DRUGS (16)
  1. HUMIRA [Suspect]
     Indication: RHEUMATOID ARTHRITIS
     Route: 058
     Dates: end: 20101001
  2. MELOXICAM, PREDNISONE + OTHER SUBSTANCES (MAGISTRAL FORMULA) [Concomitant]
     Indication: PAIN
  3. LEFLUNOMIDE [Concomitant]
     Indication: RHEUMATOID ARTHRITIS
     Route: 048
  4. CAPTOPRIL [Concomitant]
     Indication: HYPERTENSION
  5. ATENOLOL [Concomitant]
     Indication: HYPERTENSION
     Route: 048
  6. HYDROCHLOROTHIAZIDE [Concomitant]
     Indication: HYPERTENSION
     Route: 048
  7. METHYLDOPA [Concomitant]
     Indication: HYPERTENSION
     Route: 048
  8. PROPATYLNITRATE [Concomitant]
     Indication: ANGINA PECTORIS
     Route: 058
  9. AMITRIPTYLINE [Concomitant]
     Indication: INSOMNIA
     Route: 048
  10. AMITRIPTYLINE [Concomitant]
  11. CODEINE 20MG/PREDNISONE 20MG/MELOXICAM 15MG/CHLOROQUINE 7MG [Concomitant]
     Indication: RHEUMATOID ARTHRITIS
     Route: 048
  12. LYRICA [Concomitant]
     Indication: ANGIOPATHY
     Route: 048
  13. CIPROFLOXACIN [Concomitant]
     Indication: ANGIOPATHY
     Route: 048
  14. CILOSTAZOL [Concomitant]
     Indication: ANGIOPATHY
     Route: 048
  15. NEMODINE [Concomitant]
     Indication: HYPERTENSION
     Route: 048
  16. PROPRANOLOL [Concomitant]
     Indication: HYPERTENSION
     Route: 048

REACTIONS (15)
  - ARTHRALGIA [None]
  - BACK PAIN [None]
  - BLOOD CHOLESTEROL INCREASED [None]
  - BLOOD PRESSURE INADEQUATELY CONTROLLED [None]
  - CHEST DISCOMFORT [None]
  - CHEST PAIN [None]
  - DIABETES MELLITUS [None]
  - DIABETIC NEUROPATHY [None]
  - DYSPNOEA [None]
  - FALL [None]
  - INFARCTION [None]
  - PAIN IN EXTREMITY [None]
  - PERIPHERAL VASCULAR DISORDER [None]
  - SKIN INFECTION [None]
  - UPPER LIMB FRACTURE [None]
